FAERS Safety Report 6909755-5 (Version None)
Quarter: 2010Q3

REPORT INFORMATION
  Report Type: 
  Country: None (occurrence: None)
  Receive Date: 20100806
  Receipt Date: 20100729
  Transmission Date: 20110219
  Serious: Yes (Other)
  Sender: FDA-Public Use
  Company Number: US-BIOGENIDEC-2010BI002084

PATIENT
  Age: 54 Year
  Sex: Female
  Weight: 73 kg

DRUGS (3)
  1. AVONEX [Suspect]
     Indication: MULTIPLE SCLEROSIS
     Route: 030
     Dates: start: 19960101, end: 20030101
  2. AVONEX [Suspect]
     Route: 030
     Dates: start: 20030101, end: 20070101
  3. AVONEX [Suspect]
     Route: 030
     Dates: start: 20080201

REACTIONS (15)
  - ARTHROPATHY [None]
  - CERVICAL VERTEBRAL FRACTURE [None]
  - CONTUSION [None]
  - CYST [None]
  - DIABETES MELLITUS [None]
  - FOOT FRACTURE [None]
  - HEAD DEFORMITY [None]
  - INJECTION SITE HAEMATOMA [None]
  - MULTIPLE SCLEROSIS [None]
  - NERVE COMPRESSION [None]
  - NON-HODGKIN'S LYMPHOMA [None]
  - OSTEOPOROSIS [None]
  - PHARYNGEAL MASS [None]
  - PROTEIN S DEFICIENCY [None]
  - THROMBOSIS IN DEVICE [None]
